FAERS Safety Report 4637513-3 (Version None)
Quarter: 2005Q2

REPORT INFORMATION
  Report Type: 
  Country: None (occurrence: None)
  Receive Date: 20050418
  Receipt Date: 20050405
  Transmission Date: 20051028
  Serious: Yes (Hospitalization, Other)
  Sender: FDA-Public Use
  Company Number: PHEH2005US03975

PATIENT
  Age: 52 Year
  Sex: Male

DRUGS (1)
  1. RITALIN LA [Suspect]
     Indication: ATTENTION DEFICIT/HYPERACTIVITY DISORDER
     Dosage: UNK, QD
     Route: 048
     Dates: start: 20041211, end: 20050115

REACTIONS (5)
  - ANGIOPLASTY [None]
  - CATHETERISATION CARDIAC [None]
  - CHEST PAIN [None]
  - CORONARY ARTERY OCCLUSION [None]
  - STENT PLACEMENT [None]
